FAERS Safety Report 15959363 (Version 1)
Quarter: 2019Q1

REPORT INFORMATION
  Report Type: Spontaneous
  Country: ES (occurrence: ES)
  Receive Date: 20190214
  Receipt Date: 20190214
  Transmission Date: 20190417
  Serious: Yes (Hospitalization)
  Sender: FDA-Public Use
  Company Number: ES-APOTEX-2019AP007674

PATIENT
  Age: 31 Year
  Sex: Female

DRUGS (10)
  1. TIZANIDINE. [Interacting]
     Active Substance: TIZANIDINE
     Indication: NECK PAIN
     Dosage: 2 MG, TID
     Route: 065
     Dates: start: 201605
  2. TIZANIDINE. [Interacting]
     Active Substance: TIZANIDINE
     Dosage: 2 MG, QD (FOR LAST FOUR DAYS)
     Route: 065
  3. TIZANIDINE. [Interacting]
     Active Substance: TIZANIDINE
     Dosage: 2 MG, UNK (EVERY 3 HOURS, INCREASED DOSE BY HER OWN)
     Route: 065
  4. SERTRALINE [Interacting]
     Active Substance: SERTRALINE HYDROCHLORIDE
     Indication: MIXED ANXIETY AND DEPRESSIVE DISORDER
  5. TIZANIDINE. [Interacting]
     Active Substance: TIZANIDINE
     Dosage: 2 MG, TID (RESTARTED)
     Route: 065
  6. TIZANIDINE. [Interacting]
     Active Substance: TIZANIDINE
     Dosage: 2 MG, BID (TAPPERED)
     Route: 065
  7. DIAZEPAM. [Interacting]
     Active Substance: DIAZEPAM
     Indication: MIGRAINE
     Dosage: 2.5 MG, TID
     Route: 065
  8. TIZANIDINE. [Interacting]
     Active Substance: TIZANIDINE
     Indication: MUSCLE CONTRACTURE
     Dosage: 2 MG, QD
     Route: 065
  9. SERTRALINE [Suspect]
     Active Substance: SERTRALINE HYDROCHLORIDE
     Indication: MIGRAINE
     Dosage: 100 MG, QD
     Route: 065
  10. DIAZEPAM. [Interacting]
     Active Substance: DIAZEPAM
     Indication: MIXED ANXIETY AND DEPRESSIVE DISORDER

REACTIONS (9)
  - Drug interaction [Unknown]
  - Tachypnoea [Unknown]
  - Tachycardia [Unknown]
  - Vomiting [Unknown]
  - Temperature regulation disorder [Unknown]
  - Blood pressure increased [Not Recovered/Not Resolved]
  - Sinus tachycardia [Unknown]
  - Tremor [Recovered/Resolved]
  - Nausea [Unknown]
